FAERS Safety Report 16266446 (Version 2)
Quarter: 2019Q2

REPORT INFORMATION
  Report Type: Spontaneous
  Country: FR (occurrence: FR)
  Receive Date: 20190502
  Receipt Date: 20190603
  Transmission Date: 20190711
  Serious: Yes (Other)
  Sender: FDA-Public Use
  Company Number: PHHY2019FR099534

PATIENT
  Age: 68 Year
  Sex: Male
  Weight: 80 kg

DRUGS (2)
  1. TAFINLAR [Suspect]
     Active Substance: DABRAFENIB MESYLATE
     Indication: MALIGNANT MELANOMA
     Dosage: 2 DF OF 150 MG
     Route: 065
     Dates: start: 201810, end: 201904
  2. MEKINIST [Suspect]
     Active Substance: TRAMETINIB DIMETHYL SULFOXIDE
     Indication: MALIGNANT MELANOMA
     Dosage: 2 MG, QD
     Route: 065
     Dates: start: 201810

REACTIONS (2)
  - Uveitis [Recovered/Resolved]
  - Uveitis [Recovering/Resolving]

NARRATIVE: CASE EVENT DATE: 20190314
